FAERS Safety Report 21799904 (Version 2)
Quarter: 2024Q3

REPORT INFORMATION
  Report Type: Spontaneous
  Country: US (occurrence: US)
  Receive Date: 20221230
  Receipt Date: 20240820
  Transmission Date: 20241017
  Serious: No
  Sender: SANOFI AVENTIS
  Company Number: US-SA-SAC20221229001099

PATIENT
  Sex: Female
  Weight: 131.54 kg

DRUGS (1)
  1. DUPIXENT [Suspect]
     Active Substance: DUPILUMAB
     Indication: Asthma
     Dosage: 300 MG, QOW
     Route: 058
     Dates: start: 202210

REACTIONS (4)
  - Injection site pain [Unknown]
  - Product preparation error [Unknown]
  - Decreased activity [Unknown]
  - Injection site bruising [Unknown]
